FAERS Safety Report 23027122 (Version 1)
Quarter: 2023Q4

REPORT INFORMATION
  Report Type: Spontaneous
  Country: NL (occurrence: NL)
  Receive Date: 20231004
  Receipt Date: 20231004
  Transmission Date: 20240110
  Serious: Yes (Other)
  Sender: FDA-Public Use
  Company Number: None

PATIENT
  Age: 85 Year
  Sex: Female
  Weight: 59 kg

DRUGS (10)
  1. CIPROFLOXACIN [Suspect]
     Active Substance: CIPROFLOXACIN
     Indication: Cystitis
     Dosage: 500 MILLIGRAM, QOD (2X1 TABLET)
     Route: 065
     Dates: start: 20230706, end: 20230713
  2. PANTOPRAZOLE SODIUM [Concomitant]
     Active Substance: PANTOPRAZOLE SODIUM
     Dosage: 20 MILLIGRAM (GASTRO-RESISTANT TABLET
     Route: 065
  3. LIVSANE PARACETAMOL [Concomitant]
     Dosage: 500 MILLIGRAM TABLET
     Route: 065
  4. METFORMIN [Concomitant]
     Active Substance: METFORMIN HYDROCHLORIDE
     Dosage: 500 MILLIGRAM TABLET
     Route: 065
  5. SITAGLIPTIN [Concomitant]
     Active Substance: SITAGLIPTIN
     Dosage: 10 MILLIGRAM (TABLET)
     Route: 065
  6. FUROSEMIDE [Concomitant]
     Active Substance: FUROSEMIDE
     Dosage: 40 MILLIGRAM (TABLET)
     Route: 065
  7. MECLIZINE\PYRIDOXINE [Concomitant]
     Active Substance: MECLIZINE\PYRIDOXINE
     Dosage: TABLET, 12,5/25 MG (MILLIGRAM)
     Route: 065
  8. METOPROLOL SUCCINATE [Concomitant]
     Active Substance: METOPROLOL SUCCINATE
     Dosage: 25 MILLIGRAM (CONTROLLED-RELEASE TABLET, 25 MG (M
     Route: 065
  9. APIXABAN [Concomitant]
     Active Substance: APIXABAN
     Dosage: 5 MILLIGRAM (TABLET)
     Route: 065
  10. GLICLAZIDE [Concomitant]
     Active Substance: GLICLAZIDE
     Dosage: 80 MILLIGRAM (CONTROLLED-RELEASE TABLET)
     Route: 065

REACTIONS (4)
  - Depressed level of consciousness [Recovering/Resolving]
  - Abdominal pain lower [Recovering/Resolving]
  - Chorea [Recovering/Resolving]
  - Vomiting [Recovering/Resolving]
